FAERS Safety Report 5048176-X (Version None)
Quarter: 2006Q3

REPORT INFORMATION
  Report Type: 
  Country: None (occurrence: None)
  Receive Date: 20060711
  Receipt Date: 20060630
  Transmission Date: 20061208
  Serious: Yes (Death)
  Sender: FDA-Public Use
  Company Number: BR-JNJFOC-20060700492

PATIENT
  Age: 4 Year
  Sex: Female
  Weight: 4.7 kg

DRUGS (4)
  1. TOPAMAX [Suspect]
     Indication: CONVULSION
     Route: 048
  2. PHENOBARBITAL [Concomitant]
     Indication: CONVULSION
     Route: 048
  3. EPELIN [Concomitant]
     Indication: CONVULSION
     Route: 048
  4. SIMETHICONE [Concomitant]
     Indication: ABDOMINAL PAIN
     Route: 048

REACTIONS (3)
  - ASPIRATION BRONCHIAL [None]
  - CARDIAC ARREST [None]
  - SOMNOLENCE [None]
